FAERS Safety Report 8983019 (Version 1)
Quarter: 2012Q4

REPORT INFORMATION
  Report Type: 
  Country: US (occurrence: US)
  Receive Date: 20121224
  Receipt Date: 20121224
  Transmission Date: 20130627
  Serious: Yes (Other)
  Sender: FDA-Public Use
  Company Number: PHHY2012US115990

PATIENT
  Age: 80 Year
  Sex: Male

DRUGS (11)
  1. VALPROIC ACID [Suspect]
     Indication: SCHIZOPHRENIA, PARANOID TYPE
     Dosage: 3000 mg, daily
  2. VALPROIC ACID [Interacting]
     Dosage: 2000 mg, daily
  3. ISONIAZID [Suspect]
     Dosage: 300 mg, daily
  4. PYRIDOXINE [Concomitant]
     Dosage: 50 mg, daily
  5. QUETIAPINE [Concomitant]
     Dosage: 300 mg, daily
  6. QUETIAPINE [Concomitant]
     Dosage: 150 mg, daily
  7. OXYCODONE [Concomitant]
  8. TAMSULOSIN [Concomitant]
  9. FINASTERIDE [Concomitant]
  10. OMEPRAZOLE [Concomitant]
  11. CYANOCOBALAMIN [Concomitant]

REACTIONS (10)
  - Toxicity to various agents [Recovered/Resolved]
  - Drug interaction [Recovered/Resolved]
  - Drooling [Recovered/Resolved]
  - Cognitive disorder [Recovered/Resolved]
  - Decreased appetite [Recovered/Resolved]
  - Dysarthria [Recovered/Resolved]
  - Hyperammonaemia [Recovered/Resolved]
  - Lethargy [Recovered/Resolved]
  - Drug level increased [Recovered/Resolved]
  - Incorrect dose administered [Unknown]
